FAERS Safety Report 13871094 (Version 1)
Quarter: 2017Q3

REPORT INFORMATION
  Report Type: Spontaneous
  Country: FR (occurrence: FR)
  Receive Date: 20170816
  Receipt Date: 20170816
  Transmission Date: 20171127
  Serious: Yes (Hospitalization, Other)
  Sender: FDA-Public Use
  Company Number: FR-ROCHE-1973684

PATIENT
  Age: 69 Year
  Sex: Female

DRUGS (4)
  1. HERCEPTIN [Suspect]
     Active Substance: TRASTUZUMAB
     Indication: INVASIVE DUCTAL BREAST CARCINOMA
     Route: 042
     Dates: start: 201608, end: 201701
  2. HERCEPTIN [Suspect]
     Active Substance: TRASTUZUMAB
     Dosage: SINGLE AGENT THERAPY
     Route: 042
     Dates: start: 201701
  3. TAXOTERE [Suspect]
     Active Substance: DOCETAXEL
     Indication: INVASIVE DUCTAL BREAST CARCINOMA
     Route: 065
     Dates: start: 201608, end: 201701
  4. CARBOPLATIN. [Suspect]
     Active Substance: CARBOPLATIN
     Indication: INVASIVE DUCTAL BREAST CARCINOMA
     Route: 065
     Dates: start: 201608, end: 201701

REACTIONS (9)
  - Diarrhoea [Recovered/Resolved]
  - Colitis [Recovered/Resolved]
  - Arthralgia [Unknown]
  - Erythema [Not Recovered/Not Resolved]
  - Dry eye [Recovering/Resolving]
  - Myalgia [Unknown]
  - Neutropenia [Recovered/Resolved]
  - Ejection fraction decreased [Unknown]
  - Dry skin [Unknown]

NARRATIVE: CASE EVENT DATE: 201608
